FAERS Safety Report 13258481 (Version 1)
Quarter: 2017Q1

REPORT INFORMATION
  Report Type: Spontaneous
  Country: US (occurrence: US)
  Receive Date: 20170222
  Receipt Date: 20170222
  Transmission Date: 20170428
  Serious: Yes (Other)
  Sender: FDA-Public Use
  Company Number: PHEH2017US004466

PATIENT
  Sex: Female

DRUGS (2)
  1. ILARIS [Suspect]
     Active Substance: CANAKINUMAB
     Dosage: UNK (LAST DOSE)
     Route: 065
     Dates: start: 20170206
  2. ILARIS [Suspect]
     Active Substance: CANAKINUMAB
     Indication: JUVENILE IDIOPATHIC ARTHRITIS
     Dosage: UNK (04 MONTH AGO)
     Route: 065

REACTIONS (3)
  - Pyrexia [Unknown]
  - Serum ferritin increased [Unknown]
  - Juvenile idiopathic arthritis [Unknown]
